FAERS Safety Report 17063029 (Version 1)
Quarter: 2019Q4

REPORT INFORMATION
  Report Type: Spontaneous
  Country: GB (occurrence: GB)
  Receive Date: 20191122
  Receipt Date: 20191122
  Transmission Date: 20200122
  Serious: Yes (Hospitalization)
  Sender: FDA-Public Use
  Company Number: GB-TEVA-2019-GB-1138882

PATIENT
  Age: 75 Year
  Sex: Male

DRUGS (12)
  1. LANSOPRAZOLE. [Suspect]
     Active Substance: LANSOPRAZOLE
     Dosage: IN THE MORNING , 15 MG 1 DAYS
     Route: 048
  2. PREDNISOLONE. [Concomitant]
     Active Substance: PREDNISOLONE
     Dosage: IN THE MORNING , 30 MG 1 DAYS
     Dates: start: 20180622, end: 20180625
  3. BISOPROLOL [Concomitant]
     Active Substance: BISOPROLOL
     Dosage: 7.5 MG
  4. AMLODIPINE [Concomitant]
     Active Substance: AMLODIPINE BESYLATE
     Dosage: 10 MG 1 DAYS
  5. DOXYCYCLINE. [Concomitant]
     Active Substance: DOXYCYCLINE
     Dosage: 100 MG
     Dates: start: 20180622, end: 20180629
  6. INDAPAMIDE. [Suspect]
     Active Substance: INDAPAMIDE
     Dosage: IN THE MORNING , 2.5 MG 1 DAYS
     Route: 048
  7. CANDESARTAN. [Suspect]
     Active Substance: CANDESARTAN
     Dosage: IN THE MORNING , 32 MG 1 DAYS
     Route: 048
  8. THIAMINE. [Concomitant]
     Active Substance: THIAMINE
     Dosage: 50 MG
  9. SALBUTAMOL [Concomitant]
     Active Substance: ALBUTEROL
     Dosage: 100MICROGRAMS/DOSE INHALER CFC FREE
     Dates: start: 20180622
  10. SPIRONOLACTONE. [Suspect]
     Active Substance: SPIRONOLACTONE
     Dosage: IN THE MORNING , 12.5 MG 1 DAYS
     Route: 048
  11. ATORVASTATIN [Concomitant]
     Active Substance: ATORVASTATIN
     Dosage: 40 MG
  12. CLOPIDOGREL [Concomitant]
     Active Substance: CLOPIDOGREL BISULFATE
     Dosage: 75 MG

REACTIONS (5)
  - Confusional state [Unknown]
  - Hyponatraemia [Recovering/Resolving]
  - Consciousness fluctuating [Unknown]
  - Hypokalaemia [Recovered/Resolved]
  - Fall [Unknown]

NARRATIVE: CASE EVENT DATE: 20180703
